FAERS Safety Report 6903287-6 (Version None)
Quarter: 2010Q3

REPORT INFORMATION
  Report Type: 
  Country: None (occurrence: None)
  Receive Date: 20100803
  Receipt Date: 20080725
  Transmission Date: 20110219
  Serious: No
  Sender: FDA-Public Use
  Company Number: US-PFIZER INC-2008063566

PATIENT
  Sex: Female
  Weight: 71.8 kg

DRUGS (7)
  1. LYRICA [Suspect]
     Indication: NEURALGIA
     Route: 048
     Dates: start: 20071001, end: 20080704
  2. COREG [Concomitant]
  3. LASIX [Concomitant]
  4. POTASSIUM [Concomitant]
  5. ALL OTHER THERAPEUTIC PRODUCTS [Concomitant]
  6. PREVACID [Concomitant]
  7. DRUG, UNSPECIFIED [Concomitant]

REACTIONS (3)
  - COUGH [None]
  - DYSGEUSIA [None]
  - DYSPNOEA [None]
